FAERS Safety Report 10010533 (Version 2)
Quarter: 2014Q1

REPORT INFORMATION
  Report Type: Report from Study
  Country: CA (occurrence: CA)
  Receive Date: 20140314
  Receipt Date: 20140314
  Transmission Date: 20141002
  Serious: Yes (Other)
  Sender: FDA-Public Use
  Company Number: CA-BRISTOL-MYERS SQUIBB COMPANY-17311796

PATIENT
  Age: 63 Year
  Sex: Male
  Weight: 75 kg

DRUGS (3)
  1. ORENCIA [Suspect]
     Indication: RHEUMATOID ARTHRITIS
     Dosage: NO OF INF-1?2K74506,EXP:JUL2015,3E73716,EXP:MAR16,Q4WKS
     Route: 042
     Dates: start: 20130108, end: 20140131
  2. PREDNISONE [Suspect]
  3. ARAVA [Concomitant]
     Dosage: 1DF= 20 UNITS NOS

REACTIONS (8)
  - Urinary incontinence [Not Recovered/Not Resolved]
  - Labile blood pressure [Not Recovered/Not Resolved]
  - Hemiparesis [Not Recovered/Not Resolved]
  - Urinary tract infection [Not Recovered/Not Resolved]
  - Nasopharyngitis [Unknown]
  - Rhinorrhoea [Not Recovered/Not Resolved]
  - Dry mouth [Unknown]
  - Blood test abnormal [Unknown]
